FAERS Safety Report 13400661 (Version 1)
Quarter: 2017Q2

REPORT INFORMATION
  Report Type: Spontaneous
  Country: SE (occurrence: SE)
  Receive Date: 20170404
  Receipt Date: 20170404
  Transmission Date: 20170830
  Serious: Yes (Hospitalization)
  Sender: FDA-Public Use
  Company Number: SE-TEVA-752791ACC

PATIENT
  Age: 65 Year
  Sex: Male

DRUGS (17)
  1. FLUOXETIN STADA [Concomitant]
  2. SEROQUEL [Concomitant]
     Active Substance: QUETIAPINE FUMARATE
  3. FOLACIN [Concomitant]
     Active Substance: FOLIC ACID
  4. ALVEDON [Concomitant]
     Active Substance: ACETAMINOPHEN
  5. CAMPRAL [Concomitant]
     Active Substance: ACAMPROSATE CALCIUM
  6. TERRACORTRIL MED POLYMYXIN B [Concomitant]
  7. STESOLID [Suspect]
     Active Substance: DIAZEPAM
  8. SOBRIL [Suspect]
     Active Substance: OXAZEPAM
     Indication: ANXIETY
     Dosage: 20 MG / DAY
     Dates: start: 20140710
  9. FLUNITRAZEPAM [Suspect]
     Active Substance: FLUNITRAZEPAM
  10. LOSARTAN SANDOZ [Concomitant]
     Active Substance: LOSARTAN
  11. ACETYLCYSTEIN MEDA [Concomitant]
  12. LYRICA [Concomitant]
     Active Substance: PREGABALIN
  13. IMOVANE [Concomitant]
     Active Substance: ZOPICLONE
  14. EKLIRA GENUAIR [Concomitant]
     Active Substance: ACLIDINIUM BROMIDE
  15. CARVEDILOL HEXAL [Concomitant]
     Active Substance: CARVEDILOL
  16. TROMBYL [Concomitant]
     Active Substance: ASPIRIN
  17. ORALOVITE [Concomitant]
     Active Substance: ASCORBIC ACID\NIACINAMIDE\PYRIDOXINE\RIBOFLAVIN\THIAMINE

REACTIONS (2)
  - Altered state of consciousness [Recovered/Resolved]
  - Toxicity to various agents [Recovered/Resolved]

NARRATIVE: CASE EVENT DATE: 20150512
